FAERS Safety Report 5980814-7 (Version None)
Quarter: 2008Q4

REPORT INFORMATION
  Report Type: 
  Country: None (occurrence: None)
  Receive Date: 20081205
  Receipt Date: 20080513
  Transmission Date: 20090506
  Serious: No
  Sender: FDA-Public Use
  Company Number: A0727559A

PATIENT
  Sex: Female

DRUGS (1)
  1. COMMIT [Suspect]
     Indication: DRUG USE FOR UNKNOWN INDICATION
     Dates: start: 20080421

REACTIONS (1)
  - FLATULENCE [None]
